FAERS Safety Report 26060463 (Version 1)
Quarter: 2025Q4

REPORT INFORMATION
  Report Type: Spontaneous
  Country: US (occurrence: US)
  Receive Date: 20251118
  Receipt Date: 20251118
  Transmission Date: 20260118
  Serious: No
  Sender: SANOFI AVENTIS
  Company Number: US-SA-2025SA344755

PATIENT
  Age: 60 Year

DRUGS (1)
  1. ELITEK [Suspect]
     Active Substance: RASBURICASE
     Indication: Essential hypertension
     Dosage: 1 DF, BID
     Route: 042

REACTIONS (1)
  - Off label use [Unknown]
